FAERS Safety Report 9791441 (Version 2)
Quarter: 2014Q1

REPORT INFORMATION
  Report Type: Spontaneous
  Country: US (occurrence: US)
  Receive Date: 20140101
  Receipt Date: 20140116
  Transmission Date: 20141002
  Serious: No
  Sender: FDA-Public Use
  Company Number: US-009507513-1312USA009170

PATIENT
  Age: 61 Year
  Sex: Female
  Weight: 76.19 kg

DRUGS (1)
  1. OXYTROL FOR WOMEN [Suspect]
     Indication: BLADDER PROLAPSE
     Dosage: UNK, Q4D
     Route: 062
     Dates: start: 20131114, end: 20131130

REACTIONS (2)
  - Drug ineffective [Unknown]
  - Off label use [Unknown]
